FAERS Safety Report 4603564-8 (Version None)
Quarter: 2005Q1

REPORT INFORMATION
  Report Type: 
  Country: None (occurrence: None)
  Receive Date: 20050308
  Receipt Date: 20050303
  Transmission Date: 20050727
  Serious: Yes (Other)
  Sender: FDA-Public Use
  Company Number: GBWYE475403MAR05

PATIENT
  Sex: Male

DRUGS (1)
  1. EFEXOR XL  EXTENDED RELEASE [Suspect]
     Dates: start: 20040801

REACTIONS (4)
  - CONFUSIONAL STATE [None]
  - NEOPLASM [None]
  - SUICIDAL IDEATION [None]
  - WEIGHT DECREASED [None]
